FAERS Safety Report 18752507 (Version 1)
Quarter: 2021Q1

REPORT INFORMATION
  Report Type: Spontaneous
  Country: US (occurrence: US)
  Receive Date: 20210118
  Receipt Date: 20210118
  Transmission Date: 20210419
  Serious: Yes (Death)
  Sender: FDA-Public Use
  Company Number: US-PERRIGO-21US000602

PATIENT
  Age: 70 Year
  Sex: Female

DRUGS (6)
  1. APIXABAN [Suspect]
     Active Substance: APIXABAN
     Indication: SUSPECTED SUICIDE
     Dosage: UNKNOWN, UNKNOWN
     Route: 048
     Dates: end: 2019
  2. OMEPRAZOLE. [Suspect]
     Active Substance: OMEPRAZOLE
     Indication: SUSPECTED SUICIDE
     Dosage: UNKNOWN, UNKNOWN
     Route: 048
     Dates: end: 2019
  3. DIGOXIN. [Suspect]
     Active Substance: DIGOXIN
     Indication: SUSPECTED SUICIDE
     Dosage: UNKNOWN, UNKNOWN
     Route: 048
     Dates: end: 2019
  4. AMIODARONE [Suspect]
     Active Substance: AMIODARONE
     Indication: SUSPECTED SUICIDE
     Dosage: UNKNOWN, UNKNOWN
     Route: 048
     Dates: end: 2019
  5. MELOXICAM. [Suspect]
     Active Substance: MELOXICAM
     Indication: SUSPECTED SUICIDE
     Dosage: UNKNOWN, UNKNOWN
     Route: 048
     Dates: end: 2019
  6. GABAPENTIN. [Suspect]
     Active Substance: GABAPENTIN
     Indication: SUSPECTED SUICIDE
     Dosage: UNKNOWN, UNKNOWN
     Route: 048
     Dates: end: 2019

REACTIONS (1)
  - Exposure to toxic agent [Fatal]
